FAERS Safety Report 4379809-9 (Version None)
Quarter: 2004Q2

REPORT INFORMATION
  Report Type: 
  Country: None (occurrence: None)
  Receive Date: 20040614
  Receipt Date: 20040601
  Transmission Date: 20050107
  Serious: Yes (Hospitalization)
  Sender: FDA-Public Use
  Company Number: 2004AP02958

PATIENT
  Age: 59 Year
  Sex: Female

DRUGS (1)
  1. PULMICORT [Suspect]
     Indication: ASTHMA
     Dosage: 400 UG DAILY IH
     Route: 055
     Dates: start: 20040409, end: 20040409

REACTIONS (10)
  - BLADDER PAIN [None]
  - HAEMORRHOIDS [None]
  - KELOID SCAR [None]
  - LOCAL SWELLING [None]
  - LOCALISED OEDEMA [None]
  - MUCOSAL INFLAMMATION [None]
  - RECTAL ABSCESS [None]
  - SCAR PAIN [None]
  - VAGINAL PAIN [None]
  - VAGINAL SWELLING [None]
